FAERS Safety Report 9309833 (Version 1)
Quarter: 2013Q2

REPORT INFORMATION
  Report Type: Spontaneous
  Country: US (occurrence: US)
  Receive Date: 20130525
  Receipt Date: 20130525
  Transmission Date: 20140414
  Serious: No
  Sender: FDA-Public Use
  Company Number: US-BRISTOL-MYERS SQUIBB COMPANY-18748053

PATIENT
  Age: 45 Year
  Sex: Female
  Weight: 131.97 kg

DRUGS (2)
  1. BYDUREON [Suspect]
     Indication: TYPE 2 DIABETES MELLITUS
     Route: 058
  2. METFORMIN [Concomitant]
     Indication: DIABETES MELLITUS

REACTIONS (4)
  - Feeling abnormal [Unknown]
  - Road traffic accident [Unknown]
  - Weight decreased [Not Recovered/Not Resolved]
  - Injection site haemorrhage [Recovering/Resolving]
